FAERS Safety Report 16241262 (Version 1)
Quarter: 2019Q2

REPORT INFORMATION
  Report Type: Report from Study
  Country: None (occurrence: US)
  Receive Date: 20190425
  Receipt Date: 20190425
  Transmission Date: 20190711
  Serious: Yes (Hospitalization, Other)
  Sender: FDA-Public Use
  Company Number: US-ABBVIE-19S-163-2755007-00

PATIENT
  Age: 64 Year
  Sex: Male

DRUGS (1)
  1. CREON [Suspect]
     Active Substance: PANCRELIPASE AMYLASE\PANCRELIPASE LIPASE\PANCRELIPASE PROTEASE
     Indication: PRODUCT USED FOR UNKNOWN INDICATION
     Route: 048

REACTIONS (15)
  - Pneumonia [Unknown]
  - Nervous system disorder [Unknown]
  - Type V hyperlipidaemia [Unknown]
  - Cerebrovascular accident [Unknown]
  - Neck pain [Unknown]
  - Drug hypersensitivity [Unknown]
  - Hospitalisation [Unknown]
  - Adenocarcinoma pancreas [Unknown]
  - Skin discolouration [Unknown]
  - Anaphylactic reaction [Unknown]
  - Pancreatic duct dilatation [Unknown]
  - Ligament sprain [Unknown]
  - Metastases to liver [Unknown]
  - Pancreatic mass [Unknown]
  - Hypertension [Unknown]

NARRATIVE: CASE EVENT DATE: 20181224
